FAERS Safety Report 18410166 (Version 2)
Quarter: 2020Q4

REPORT INFORMATION
  Report Type: Spontaneous
  Country: DE (occurrence: DE)
  Receive Date: 20201021
  Receipt Date: 20201201
  Transmission Date: 20210114
  Serious: Yes (Life-Threatening, Hospitalization)
  Sender: FDA-Public Use
  Company Number: DE-LUPIN PHARMACEUTICALS INC.-2020-06929

PATIENT
  Age: 48 Year
  Sex: Male

DRUGS (11)
  1. PREDNISOLONE. [Suspect]
     Active Substance: PREDNISOLONE
     Indication: CARDIAC ARREST
     Dosage: 750 MILLIGRAM
     Route: 042
  2. PREDNISOLONE. [Suspect]
     Active Substance: PREDNISOLONE
     Indication: CONTRAST MEDIA ALLERGY
     Dosage: 250 MILLIGRAM
     Route: 065
  3. HYDROCORTISONE. [Suspect]
     Active Substance: HYDROCORTISONE
     Indication: CAPILLARY LEAK SYNDROME
     Dosage: UNK (CONTINUOUS)
     Route: 042
  4. NITRIC OXIDE. [Suspect]
     Active Substance: NITRIC OXIDE
     Indication: RESPIRATORY FAILURE
     Dosage: UNK (UP TO 7 PPM)
     Route: 065
  5. NITRIC OXIDE. [Suspect]
     Active Substance: NITRIC OXIDE
     Indication: CARDIAC ARREST
  6. EPINEPHRINE. [Suspect]
     Active Substance: EPINEPHRINE
     Indication: CARDIAC ARREST
  7. EPINEPHRINE. [Suspect]
     Active Substance: EPINEPHRINE
     Indication: HYPOTENSION
     Dosage: 1.5 MILLIGRAM (BOLUS)
     Route: 065
  8. IMERON 400 [Concomitant]
     Active Substance: IOMEPROL
     Indication: VASCULAR TEST
     Dosage: 70 MILLILITER (FLOW SPEED 5.8 ML/S)
     Route: 065
  9. SALINE [SODIUM CHLORIDE] [Concomitant]
     Active Substance: SODIUM CHLORIDE
     Indication: VASCULAR TEST
     Dosage: 100 MILLILITER (ISOTONIC)
     Route: 065
  10. DIMETINDEN [Suspect]
     Active Substance: DIMETHINDENE
     Indication: CONTRAST MEDIA ALLERGY
     Dosage: 8 MILLIGRAM
     Route: 065
  11. DIMETINDEN [Suspect]
     Active Substance: DIMETHINDENE
     Indication: CARDIAC ARREST

REACTIONS (1)
  - Drug ineffective [Unknown]
